FAERS Safety Report 10179871 (Version 1)
Quarter: 2014Q2

REPORT INFORMATION
  Report Type: Spontaneous
  Country: US (occurrence: US)
  Receive Date: 20140519
  Receipt Date: 20140519
  Transmission Date: 20141212
  Serious: No
  Sender: FDA-Public Use
  Company Number: US-AMGEN INC.-USASP2013069236

PATIENT
  Age: 79 Year
  Sex: Female

DRUGS (3)
  1. PROLIA [Suspect]
     Indication: OSTEOPOROSIS POSTMENOPAUSAL
     Dosage: 60 MG, Q6MO
     Route: 065
     Dates: start: 201302
  2. CALCIUM [Concomitant]
  3. VITAMINS                           /90003601/ [Concomitant]

REACTIONS (3)
  - Contusion [Unknown]
  - Increased tendency to bruise [Unknown]
  - Fall [Unknown]
